FAERS Safety Report 8245554-2 (Version None)
Quarter: 2012Q1

REPORT INFORMATION
  Report Type: 
  Country: None (occurrence: None)
  Receive Date: 20120329
  Receipt Date: 20120322
  Transmission Date: 20120608
  Serious: Yes (Other)
  Sender: FDA-Public Use
  Company Number: US-ASTRAZENECA-2012SE19465

PATIENT
  Age: 65 Year
  Sex: Female
  Weight: 98.4 kg

DRUGS (5)
  1. NIASPAN [Suspect]
     Indication: BLOOD CHOLESTEROL INCREASED
     Route: 065
  2. CRESTOR [Suspect]
     Route: 048
  3. CRESTOR [Suspect]
     Indication: BLOOD CHOLESTEROL INCREASED
     Route: 048
     Dates: start: 20080101
  4. UNSPECIFIED STATINS [Suspect]
     Indication: BLOOD CHOLESTEROL INCREASED
     Route: 065
  5. LISINOPRIL [Concomitant]
     Indication: HYPERTENSION

REACTIONS (7)
  - FLUSHING [None]
  - DRUG INEFFECTIVE [None]
  - TRANSIENT ISCHAEMIC ATTACK [None]
  - CEREBROVASCULAR ACCIDENT [None]
  - DRUG HYPERSENSITIVITY [None]
  - OFF LABEL USE [None]
  - BLOOD PRESSURE INCREASED [None]
